FAERS Safety Report 7089058-1 (Version None)
Quarter: 2010Q4

REPORT INFORMATION
  Report Type: 
  Country: None (occurrence: None)
  Receive Date: 20101108
  Receipt Date: 20101026
  Transmission Date: 20110411
  Serious: Yes (Hospitalization, Other)
  Sender: FDA-Public Use
  Company Number: B0676784A

PATIENT
  Sex: Male
  Weight: 77 kg

DRUGS (4)
  1. AVANDAMET [Suspect]
     Route: 048
     Dates: start: 20081031, end: 20100601
  2. NOVONORM [Concomitant]
     Dosage: 1MG PER DAY
     Route: 048
     Dates: start: 20081001
  3. KARDEGIC [Concomitant]
     Route: 048
     Dates: start: 20070601
  4. TAREG [Concomitant]
     Route: 048

REACTIONS (6)
  - ANGINA PECTORIS [None]
  - ANGINA UNSTABLE [None]
  - ARTERIOSCLEROSIS [None]
  - MYOCARDIAL ISCHAEMIA [None]
  - PARESIS [None]
  - TRANSIENT ISCHAEMIC ATTACK [None]
